FAERS Safety Report 8913079 (Version 1)
Quarter: 2012Q4

REPORT INFORMATION
  Report Type: Spontaneous
  Country: JP (occurrence: None)
  Receive Date: 20121113
  Receipt Date: 20121113
  Transmission Date: 20130627
  Serious: Yes (Other)
  Sender: FDA-Public Use
  Company Number: DSA_60776_2012

PATIENT
  Age: 65 Year
  Sex: Male

DRUGS (7)
  1. FLUOROURACIL (FLUOROURACIL) [Suspect]
     Indication: HEPATIC NEOPLASM MALIGNANT
     Dosage: 1250 mg for 5 days; weekly intra-arterial)
  2. FLUOROURACIL (FLUOROURACIL) [Suspect]
     Indication: HEPATIC NEOPLASM MALIGNANT
     Route: 013
  3. CISPLATIN [Suspect]
     Indication: HEPATIC NEOPLASM MALIGNANT
     Dosage: 5-10 mg over 30 minutes intra-arterial)
  4. CISPLATIN [Suspect]
     Indication: HEPATIC NEOPLASM MALIGNANT
     Route: 013
  5. SORAFENIB [Suspect]
     Indication: HEPATIC NEOPLASM MALIGNANT
  6. SORAFENIB [Suspect]
     Indication: HEPATIC NEOPLASM MALIGNANT
  7. SORAFENIB [Suspect]
     Indication: HEPATIC NEOPLASM MALIGNANT

REACTIONS (1)
  - Hepatic artery thrombosis [None]
